FAERS Safety Report 8729730 (Version 3)
Quarter: 2012Q4

REPORT INFORMATION
  Report Type: Report from Study
  Country: US (occurrence: US)
  Receive Date: 20120817
  Receipt Date: 20121012
  Transmission Date: 20130627
  Serious: Yes (Congenital Anomaly, Other)
  Sender: FDA-Public Use
  Company Number: US-ABBOTT-12P-163-0968576-00

PATIENT
  Age: 32 Year
  Sex: Female

DRUGS (3)
  1. NORVIR TABLETS [Suspect]
     Indication: ANTIRETROVIRAL THERAPY
     Dosage: 100 MG PER DAY
     Route: 048
     Dates: start: 20120321
  2. REYATAZ [Suspect]
     Indication: ANTIRETROVIRAL THERAPY
     Dosage: 300 MG PER DAY
     Route: 048
     Dates: start: 20120321
  3. TRUVADA [Suspect]
     Indication: ANTIRETROVIRAL THERAPY
     Dosage: 1 TAB/CAP PER DAY
     Route: 048
     Dates: start: 20120321

REACTIONS (1)
  - Abortion spontaneous [Unknown]
